FAERS Safety Report 16672992 (Version 2)
Quarter: 2019Q3

REPORT INFORMATION
  Report Type: Spontaneous
  Country: IL (occurrence: IL)
  Receive Date: 20190806
  Receipt Date: 20190924
  Transmission Date: 20191004
  Serious: Yes (Other)
  Sender: FDA-Public Use
  Company Number: IL-TEVA-2019-IL-1088826

PATIENT
  Age: 58 Year
  Sex: Female

DRUGS (2)
  1. TRAMAL [Concomitant]
     Active Substance: TRAMADOL
  2. COD-ACAMOL [Suspect]
     Active Substance: ACETAMINOPHEN\CODEINE PHOSPHATE
     Indication: FIBROMYALGIA
     Dosage: 90 UNITS OF COD-ACAMOL PER MONTH AND SOMETIMES MORE
     Route: 065

REACTIONS (3)
  - Malaise [Unknown]
  - Product availability issue [Unknown]
  - Drug dependence [Unknown]
